FAERS Safety Report 11441850 (Version 2)
Quarter: 2015Q3

REPORT INFORMATION
  Report Type: Spontaneous
  Country: TH (occurrence: TH)
  Receive Date: 20150901
  Receipt Date: 20150915
  Transmission Date: 20151125
  Serious: Yes (Death, Hospitalization)
  Sender: FDA-Public Use
  Company Number: TH-BAYER-2015-406368

PATIENT
  Age: 58 Year
  Sex: Female

DRUGS (4)
  1. MST [MORPHINE SULFATE] [Concomitant]
     Active Substance: MORPHINE SULFATE
     Dosage: 10 MG, Q8HR
     Route: 048
  2. AMITRIPTYLINE [Concomitant]
     Active Substance: AMITRIPTYLINE
     Dosage: 25 MG
     Route: 048
  3. STIVARGA [Suspect]
     Active Substance: REGORAFENIB
     Indication: COLORECTAL CANCER METASTATIC
     Dosage: 160 MG, QD
     Route: 048
     Dates: start: 20141020, end: 20141103
  4. DULCOLAX [Concomitant]
     Active Substance: BISACODYL OR DOCUSATE SODIUM
     Dosage: 1 TAB
     Route: 048

REACTIONS (8)
  - Fatigue [None]
  - Hypophosphataemia [Unknown]
  - Colorectal cancer metastatic [Fatal]
  - Hypomagnesaemia [Unknown]
  - Hyponatraemia [Unknown]
  - Hypocalcaemia [Unknown]
  - Decreased appetite [None]
  - Myalgia [None]

NARRATIVE: CASE EVENT DATE: 20141103
